FAERS Safety Report 21631668 (Version 1)
Quarter: 2022Q4

REPORT INFORMATION
  Report Type: Spontaneous
  Country: GB (occurrence: GB)
  Receive Date: 20221123
  Receipt Date: 20221123
  Transmission Date: 20230113
  Serious: Yes (Other)
  Sender: FDA-Public Use
  Company Number: None

PATIENT

DRUGS (9)
  1. ATORVASTATIN [Suspect]
     Active Substance: ATORVASTATIN
     Indication: Blood cholesterol
     Dosage: EACH NIGHT
     Route: 065
     Dates: start: 20221025
  2. AMITRIPTYLINE HYDROCHLORIDE [Concomitant]
     Active Substance: AMITRIPTYLINE HYDROCHLORIDE
     Indication: Product used for unknown indication
     Dosage: EACH NIGHT
     Route: 065
     Dates: start: 20211130
  3. BETAHISTINE [Concomitant]
     Active Substance: BETAHISTINE
     Indication: Dizziness
     Route: 065
     Dates: start: 20221012
  4. BIMATOPROST [Concomitant]
     Active Substance: BIMATOPROST
     Indication: Product used for unknown indication
     Dosage: INSTIL INTO THE AFFECTED EYE DAILY AS ...
     Route: 065
     Dates: start: 20211130
  5. COCODAMOL [Concomitant]
     Active Substance: ACETAMINOPHEN\CODEINE PHOSPHATE
     Indication: Product used for unknown indication
     Dosage: TAKE ONE OR TWO UP TO FOUR TIMES DAILY
     Route: 065
     Dates: start: 20221005, end: 20221019
  6. Depixol [Concomitant]
     Indication: Product used for unknown indication
     Dosage: DO NOT ISSUE - FOR REFERENCE ONLY
     Route: 065
     Dates: start: 20170203
  7. FENBID [Concomitant]
     Indication: Product used for unknown indication
     Dosage: SMALL JOINTS ONLY
     Route: 065
     Dates: start: 20220809, end: 20220819
  8. FLUCLOXACILLIN [Concomitant]
     Active Substance: FLUCLOXACILLIN
     Indication: Antibiotic therapy
     Route: 065
     Dates: start: 20220923, end: 20220930
  9. PROCYCLIDINE [Concomitant]
     Active Substance: PROCYCLIDINE
     Indication: Product used for unknown indication
     Dosage: THREE TIMES A DAY
     Route: 065
     Dates: start: 20211130

REACTIONS (1)
  - Swollen tongue [Unknown]
